FAERS Safety Report 5449547-X (Version None)
Quarter: 2007Q3

REPORT INFORMATION
  Report Type: 
  Country: None (occurrence: None)
  Receive Date: 20070907
  Receipt Date: 20070829
  Transmission Date: 20080115
  Serious: Yes (Hospitalization)
  Sender: FDA-Public Use
  Company Number: 2007-04002

PATIENT
  Age: 46 Year
  Sex: Female
  Weight: 55.7 kg

DRUGS (4)
  1. LORAZEPAM [Suspect]
     Indication: ANXIETY
     Dosage: 0.5 TABLET, TID, ORAL; APPROX 45 TABS OVER 24-48 HRS,
     Route: 048
     Dates: start: 20070822, end: 20070824
  2. GEODON [Concomitant]
  3. EFFEXOR XR [Concomitant]
  4. ADDERALL 10 [Concomitant]

REACTIONS (3)
  - DRUG INEFFECTIVE [None]
  - DRUG SCREEN NEGATIVE [None]
  - OVERDOSE [None]
